FAERS Safety Report 9248364 (Version 2)
Quarter: 2013Q2

REPORT INFORMATION
  Report Type: Spontaneous
  Country: FR (occurrence: FR)
  Receive Date: 20130423
  Receipt Date: 20130521
  Transmission Date: 20140414
  Serious: Yes (Other)
  Sender: FDA-Public Use
  Company Number: FR-JNJFOC-20130412083

PATIENT
  Sex: Female

DRUGS (1)
  1. NICORETTE GUM [Suspect]
     Indication: SMOKING CESSATION THERAPY
     Dosage: 6-8 GUMS
     Route: 002
     Dates: start: 2007

REACTIONS (2)
  - Nicotine dependence [Not Recovered/Not Resolved]
  - Intentional drug misuse [Unknown]
